FAERS Safety Report 10487676 (Version 2)
Quarter: 2014Q4

REPORT INFORMATION
  Report Type: Report from Study
  Country: US (occurrence: US)
  Receive Date: 20141001
  Receipt Date: 20141009
  Transmission Date: 20150528
  Serious: Yes (Hospitalization)
  Sender: FDA-Public Use
  Company Number: US-ABBVIE-14P-163-1289750-00

PATIENT
  Age: 37 Year
  Sex: Female

DRUGS (6)
  1. HUMIRA [Suspect]
     Active Substance: ADALIMUMAB
     Route: 065
     Dates: start: 20140801, end: 20140801
  2. PRENATAL VITAMINS [Concomitant]
     Active Substance: VITAMINS
     Indication: CROHN^S DISEASE
  3. HUMIRA [Suspect]
     Active Substance: ADALIMUMAB
     Indication: CROHN^S DISEASE
     Route: 065
     Dates: start: 20140718, end: 20140718
  4. HUMIRA [Suspect]
     Active Substance: ADALIMUMAB
     Route: 065
     Dates: start: 20140815
  5. PREDNISONE. [Concomitant]
     Active Substance: PREDNISONE
     Indication: CROHN^S DISEASE
  6. IRON [Concomitant]
     Active Substance: IRON
     Indication: CROHN^S DISEASE

REACTIONS (8)
  - Kidney infection [Recovered/Resolved]
  - Abdominal discomfort [Not Recovered/Not Resolved]
  - Threatened labour [Recovered/Resolved]
  - Drug ineffective [Not Recovered/Not Resolved]
  - Threatened labour [Recovered/Resolved]
  - Urinary tract infection [Recovered/Resolved]
  - Abdominal abscess [Not Recovered/Not Resolved]
  - Abdominal pain [Unknown]

NARRATIVE: CASE EVENT DATE: 20140718
